FAERS Safety Report 18570026 (Version 4)
Quarter: 2022Q2

REPORT INFORMATION
  Report Type: Spontaneous
  Country: US (occurrence: US)
  Receive Date: 20201202
  Receipt Date: 20220518
  Transmission Date: 20220721
  Serious: No
  Sender: FDA-Public Use
  Company Number: US-PFIZER INC-2020179371

PATIENT
  Age: 65 Year
  Sex: Female

DRUGS (2)
  1. LYRICA [Suspect]
     Active Substance: PREGABALIN
     Indication: Lumbosacral radiculopathy
     Dosage: 200 MG, 3X/DAY (TAKE 2 (TWO) CAPSULE BY MOUTH THREE TIMES A DAY AS DIRECTED)
     Route: 048
  2. LYRICA [Suspect]
     Active Substance: PREGABALIN
     Indication: Polyneuropathy
     Dosage: 100 MG, 3X/DAY (1-2 CAPS P.O. TID; CAP 1X90 BTL US)
     Route: 048

REACTIONS (1)
  - Confusional state [Unknown]
